FAERS Safety Report 14564163 (Version 1)
Quarter: 2018Q1

REPORT INFORMATION
  Report Type: Report from Study
  Country: MX (occurrence: MX)
  Receive Date: 20180222
  Receipt Date: 20180222
  Transmission Date: 20180509
  Serious: Yes (Death, Hospitalization)
  Sender: FDA-Public Use
  Company Number: PHHY2018MX022230

PATIENT
  Age: 71 Year
  Sex: Female
  Weight: 63 kg

DRUGS (2)
  1. ENALAPRIL [Concomitant]
     Active Substance: ENALAPRIL
     Indication: HYPERTENSION
     Dosage: 1 DF, QD (SINCE 30 YEARS)
     Route: 048
     Dates: start: 20180129
  2. EXJADE [Suspect]
     Active Substance: DEFERASIROX
     Indication: APLASTIC ANAEMIA
     Dosage: 1500 MG, QD
     Route: 048
     Dates: start: 20171024

REACTIONS (8)
  - Cardio-respiratory arrest [Recovered/Resolved]
  - Loss of consciousness [Unknown]
  - General physical health deterioration [Unknown]
  - Cardio-respiratory arrest [Fatal]
  - Decreased appetite [Fatal]
  - Weight decreased [Fatal]
  - Pyrexia [Fatal]
  - Chest pain [Unknown]

NARRATIVE: CASE EVENT DATE: 201710
